FAERS Safety Report 4815860-X (Version None)
Quarter: 2005Q4

REPORT INFORMATION
  Report Type: 
  Country: None (occurrence: None)
  Receive Date: 20051031
  Receipt Date: 20050719
  Transmission Date: 20060501
  Serious: Yes (Hospitalization)
  Sender: FDA-Public Use
  Company Number: US-MERCK-0507USA02779

PATIENT
  Age: 74 Year
  Sex: Female
  Weight: 75 kg

DRUGS (13)
  1. VIOXX [Suspect]
     Indication: ARTHRALGIA
     Route: 048
     Dates: start: 19990825, end: 20020101
  2. AVAPRO [Concomitant]
     Indication: HYPERTENSION
     Route: 065
  3. NORVASC [Concomitant]
     Indication: BLOOD PRESSURE
     Route: 065
  4. NORVASC [Concomitant]
     Indication: CARDIAC DISORDER
     Route: 065
  5. CEFADROXIL [Concomitant]
     Indication: INFECTION
     Route: 065
  6. CEPHALEXIN [Concomitant]
     Indication: BACTERIAL INFECTION
     Route: 065
  7. CIPRO [Concomitant]
     Indication: BACTERIAL INFECTION
     Route: 065
  8. CLIMARA [Concomitant]
     Indication: MENOPAUSAL SYMPTOMS
     Route: 065
  9. HYDROCHLOROTHIAZIDE [Concomitant]
     Indication: HYPERTENSION
     Route: 065
  10. LEVAQUIN [Concomitant]
     Indication: INFECTION
     Route: 065
  11. LORAZEPAM [Concomitant]
     Indication: ANXIETY
     Route: 065
  12. PREMARIN [Concomitant]
     Indication: MENOPAUSAL SYMPTOMS
     Route: 065
  13. TAMBOCOR [Concomitant]
     Indication: HEART RATE IRREGULAR
     Route: 065

REACTIONS (11)
  - ADVERSE EVENT [None]
  - ARTHROPATHY [None]
  - BLOOD CHOLESTEROL INCREASED [None]
  - BREAST CANCER [None]
  - CEREBROVASCULAR ACCIDENT [None]
  - KNEE ARTHROPLASTY [None]
  - LARYNGEAL DISORDER [None]
  - LUNG DISORDER [None]
  - LUNG OPERATION [None]
  - STRIDOR [None]
  - TRANSIENT ISCHAEMIC ATTACK [None]
